FAERS Safety Report 6832985-8 (Version None)
Quarter: 2010Q3

REPORT INFORMATION
  Report Type: 
  Country: None (occurrence: None)
  Receive Date: 20100712
  Receipt Date: 20100528
  Transmission Date: 20110219
  Serious: No
  Sender: FDA-Public Use
  Company Number: US-BIOGENIDEC-2010BI018239

PATIENT
  Sex: Female

DRUGS (1)
  1. AVONEX [Suspect]
     Indication: MULTIPLE SCLEROSIS
     Route: 030
     Dates: start: 20080312

REACTIONS (6)
  - BALANCE DISORDER [None]
  - COGNITIVE DISORDER [None]
  - DEPRESSION [None]
  - DIPLOPIA [None]
  - DIZZINESS [None]
  - MALAISE [None]
